FAERS Safety Report 9117092 (Version 1)
Quarter: 2013Q1

REPORT INFORMATION
  Report Type: Report from Study
  Country: DE (occurrence: DE)
  Receive Date: 20130208
  Receipt Date: 20130208
  Transmission Date: 20140127
  Serious: Yes (Hospitalization)
  Sender: FDA-Public Use
  Company Number: DE-AMGEN-UK240859

PATIENT
  Age: 71 Year
  Sex: Male

DRUGS (13)
  1. DARBEPOETIN ALFA [Suspect]
     Indication: CARDIAC FAILURE
     Dosage: UNK UNK, Q2WK
     Route: 058
     Dates: start: 20070501
  2. ALLOPURINOL [Suspect]
     Dosage: UNK UNK, UNK
     Route: 065
  3. SPIRONOLACTONE [Suspect]
     Dosage: UNK UNK, UNK
     Route: 065
  4. ASS [Concomitant]
  5. CO-DIOVAN [Concomitant]
  6. NEBIVOLOL HYDROCHLORIDE [Concomitant]
  7. THIAMAZOLE [Concomitant]
  8. GLIMEPIRIDE [Concomitant]
  9. METFORMIN [Concomitant]
  10. SIMVASTATIN [Concomitant]
  11. FERROUS SULFATE [Concomitant]
  12. BERODUAL [Concomitant]
  13. BUDESONIDE/FORMOTEROL FUMARATE [Concomitant]

REACTIONS (1)
  - Hyperkalaemia [Recovered/Resolved]
